FAERS Safety Report 5430183-6 (Version None)
Quarter: 2007Q3

REPORT INFORMATION
  Report Type: 
  Country: None (occurrence: None)
  Receive Date: 20070731
  Receipt Date: 20070425
  Transmission Date: 20080115
  Serious: No
  Sender: FDA-Public Use
  Company Number: US200705003218

PATIENT
  Age: 51 Year
  Sex: Female
  Weight: 88.4 kg

DRUGS (3)
  1. BYETTA [Suspect]
     Indication: TYPE 2 DIABETES MELLITUS
     Dosage: 5 UG, 2/D, SUBCUTANEOUS; 10 UG, 2/D, SUBCUTANEOUS
     Route: 058
     Dates: start: 20060601, end: 20060701
  2. BYETTA [Suspect]
     Indication: TYPE 2 DIABETES MELLITUS
     Dosage: 5 UG, 2/D, SUBCUTANEOUS; 10 UG, 2/D, SUBCUTANEOUS
     Route: 058
     Dates: start: 20060701, end: 20070101
  3. EXENATIDE PEN, DISPOSABLE DEVICE (EXENATIDE PEN) [Concomitant]

REACTIONS (6)
  - ABDOMINAL DISCOMFORT [None]
  - DECREASED APPETITE [None]
  - DYSPEPSIA [None]
  - FLATULENCE [None]
  - NAUSEA [None]
  - WEIGHT DECREASED [None]
